FAERS Safety Report 15860991 (Version 1)
Quarter: 2019Q1

REPORT INFORMATION
  Report Type: Spontaneous
  Country: US (occurrence: US)
  Receive Date: 20190124
  Receipt Date: 20190124
  Transmission Date: 20190417
  Serious: No
  Sender: FDA-Public Use
  Company Number: US-ACCORD-094211

PATIENT
  Sex: Male
  Weight: 90.72 kg

DRUGS (1)
  1. ATORVASTATIN ACCORD [Suspect]
     Active Substance: ATORVASTATIN
     Indication: BLOOD CHOLESTEROL
     Dosage: AT NIGHT WITH WATER.
     Dates: start: 20181015

REACTIONS (2)
  - Product odour abnormal [Unknown]
  - Burning sensation [Not Recovered/Not Resolved]
